FAERS Safety Report 5127891-3 (Version None)
Quarter: 2006Q4

REPORT INFORMATION
  Report Type: 
  Country: None (occurrence: None)
  Receive Date: 20061016
  Receipt Date: 20061006
  Transmission Date: 20070319
  Serious: Yes (Other)
  Sender: FDA-Public Use
  Company Number: US-AMGEN-US196011

PATIENT
  Age: 35 Year
  Sex: Female

DRUGS (3)
  1. SENSIPAR [Suspect]
     Indication: HYPERPARATHYROIDISM SECONDARY
     Dates: start: 20060901, end: 20061001
  2. RENAGEL [Concomitant]
  3. FOSRENOL [Concomitant]
     Dates: start: 20060901, end: 20060901

REACTIONS (7)
  - CONVULSION [None]
  - EPIGLOTTIC OEDEMA [None]
  - HEADACHE [None]
  - MUSCULOSKELETAL PAIN [None]
  - NAUSEA [None]
  - REVERSIBLE AIRWAYS OBSTRUCTION [None]
  - VOMITING [None]
